FAERS Safety Report 4324907-9 (Version None)
Quarter: 2004Q1

REPORT INFORMATION
  Report Type: 
  Country: None (occurrence: None)
  Receive Date: 20040326
  Receipt Date: 20040317
  Transmission Date: 20041129
  Serious: Yes (Hospitalization)
  Sender: FDA-Public Use
  Company Number: PHNU2004DE01262

PATIENT
  Sex: Female

DRUGS (2)
  1. FEMARA [Concomitant]
     Indication: BREAST CANCER METASTATIC
     Dosage: 2.5 MG, QD
     Dates: start: 20030101
  2. AREDIA [Suspect]
     Indication: METASTASES TO BONE

REACTIONS (3)
  - BLOOD CREATININE INCREASED [None]
  - DIALYSIS [None]
  - RENAL FAILURE ACUTE [None]
